FAERS Safety Report 6967696-1 (Version None)
Quarter: 2010Q3

REPORT INFORMATION
  Report Type: 
  Country: None (occurrence: None)
  Receive Date: 20100907
  Receipt Date: 20100824
  Transmission Date: 20110219
  Serious: No
  Sender: FDA-Public Use
  Company Number: US-PFIZER INC-2010106876

PATIENT
  Age: 36 Year
  Sex: Male
  Weight: 88.435 kg

DRUGS (2)
  1. CHANTIX [Suspect]
     Indication: SMOKING CESSATION THERAPY
     Dosage: COMPLETED FULL COURSE OF THERAPY
     Route: 048
     Dates: start: 20100301, end: 20100601
  2. VICODIN [Concomitant]
     Indication: ARTHROPATHY
     Dosage: HYDROCODONE BITARTRATE 10 MG/ ACETAMINOPHEN 1 G
     Route: 048

REACTIONS (1)
  - IRRITABILITY [None]
